FAERS Safety Report 6407542-8 (Version None)
Quarter: 2009Q4

REPORT INFORMATION
  Report Type: 
  Country: None (occurrence: None)
  Receive Date: 20091020
  Receipt Date: 20091013
  Transmission Date: 20100525
  Serious: Yes (Other)
  Sender: FDA-Public Use
  Company Number: GB-TEVA-212363ISR

PATIENT
  Sex: Female
  Weight: 71 kg

DRUGS (1)
  1. RAMIPRIL [Suspect]
     Indication: HYPERTENSION
     Dates: start: 20090518, end: 20090811

REACTIONS (2)
  - MOOD SWINGS [None]
  - SUICIDAL IDEATION [None]
